FAERS Safety Report 11067227 (Version 2)
Quarter: 2015Q2

REPORT INFORMATION
  Report Type: Spontaneous
  Country: US (occurrence: US)
  Receive Date: 20150425
  Receipt Date: 20150525
  Transmission Date: 20150821
  Serious: No
  Sender: FDA-Public Use
  Company Number: US-JNJFOC-20150402159

PATIENT

DRUGS (1)
  1. REMICADE [Suspect]
     Active Substance: INFLIXIMAB
     Indication: CROHN^S DISEASE
     Route: 042

REACTIONS (9)
  - Hyperhidrosis [Unknown]
  - Discomfort [Unknown]
  - Malaise [Unknown]
  - Pain [Unknown]
  - Food poisoning [Unknown]
  - Fatigue [Unknown]
  - Drug effect decreased [Unknown]
  - Nausea [Unknown]
  - Stress [Unknown]
